FAERS Safety Report 19725350 (Version 2)
Quarter: 2021Q3

REPORT INFORMATION
  Report Type: Report from Study
  Country: CA (occurrence: CA)
  Receive Date: 20210820
  Receipt Date: 20210916
  Transmission Date: 20211014
  Serious: Yes (Hospitalization, Other)
  Sender: FDA-Public Use
  Company Number: CA-JNJFOC-20210630339

PATIENT
  Age: 65 Year
  Sex: Male
  Weight: 79 kg

DRUGS (3)
  1. COVID?19 VACCINE NOS. [Suspect]
     Active Substance: COVID-19 VACCINE NOS
     Indication: COVID-19 PROPHYLAXIS
     Route: 065
     Dates: start: 202104
  2. STELARA [Suspect]
     Active Substance: USTEKINUMAB
     Indication: CROHN^S DISEASE
     Route: 058
     Dates: start: 20190227
  3. STELARA [Suspect]
     Active Substance: USTEKINUMAB
     Dosage: THE PATIENT RECEIVED 16TH INJECTION AT DOSE OF 90 MG
     Route: 058
     Dates: start: 20210614

REACTIONS (7)
  - Crohn^s disease [Unknown]
  - Product use issue [Unknown]
  - Drug ineffective [Unknown]
  - Rib fracture [Unknown]
  - Salmonellosis [Unknown]
  - Fall [Unknown]
  - Off label use [Unknown]

NARRATIVE: CASE EVENT DATE: 20210611
